FAERS Safety Report 23188643 (Version 1)
Quarter: 2023Q4

REPORT INFORMATION
  Report Type: Spontaneous
  Country: US (occurrence: US)
  Receive Date: 20231115
  Receipt Date: 20231115
  Transmission Date: 20240110
  Serious: No
  Sender: FDA-Public Use
  Company Number: US-PFIZER INC-202300359534

PATIENT
  Age: 59 Year
  Sex: Female
  Weight: 73.48 kg

DRUGS (1)
  1. PAXLOVID [Suspect]
     Active Substance: NIRMATRELVIR\RITONAVIR
     Indication: COVID-19 treatment
     Dosage: UNK, 2X/DAY
     Route: 048
     Dates: start: 20231106, end: 20231107

REACTIONS (5)
  - Abdominal pain [Unknown]
  - Nausea [Unknown]
  - Myalgia [Unknown]
  - Ear pain [Unknown]
  - Hypertension [Unknown]
